FAERS Safety Report 5090808-4 (Version None)
Quarter: 2006Q3

REPORT INFORMATION
  Report Type: 
  Country: None (occurrence: None)
  Receive Date: 20060823
  Receipt Date: 20060815
  Transmission Date: 20061208
  Serious: Yes (Hospitalization)
  Sender: FDA-Public Use
  Company Number: DE-2006-009984

PATIENT
  Age: 21 Year
  Sex: Female

DRUGS (1)
  1. PETIBELLE 30 (21) (DROSPIRENONE, ETHINYLESTRADIOL) FILM TABLET [Suspect]
     Indication: ORAL CONTRACEPTION
     Dosage: 1 TAB (S), 1X/DAY,
     Dates: start: 20060120, end: 20060126

REACTIONS (2)
  - CHOLESTASIS [None]
  - RASH [None]
